FAERS Safety Report 8442750-6 (Version None)
Quarter: 2012Q2

REPORT INFORMATION
  Report Type: 
  Country: None (occurrence: None)
  Receive Date: 20120615
  Receipt Date: 20120608
  Transmission Date: 20120825
  Serious: Yes (Other)
  Sender: FDA-Public Use
  Company Number: FR-ROCHE-1077093

PATIENT
  Age: 13 Year
  Sex: Female
  Weight: 30.9 kg

DRUGS (1)
  1. ACTEMRA [Suspect]
     Indication: JUVENILE ARTHRITIS
     Route: 042

REACTIONS (3)
  - INFUSION RELATED REACTION [None]
  - VERTIGO [None]
  - LIVEDO RETICULARIS [None]
